FAERS Safety Report 5778683-3 (Version None)
Quarter: 2008Q2

REPORT INFORMATION
  Report Type: 
  Country: None (occurrence: None)
  Receive Date: 20080619
  Receipt Date: 20080618
  Transmission Date: 20081010
  Serious: Yes (Other)
  Sender: FDA-Public Use
  Company Number: B0525369A

PATIENT
  Age: 74 Year
  Sex: Male

DRUGS (4)
  1. SEREVENT [Suspect]
     Indication: EMPHYSEMA
     Route: 055
     Dates: start: 20061101, end: 20080611
  2. THEO-DUR [Concomitant]
     Indication: EMPHYSEMA
     Route: 048
     Dates: start: 20061101
  3. EVIPROSTAT [Concomitant]
     Indication: DRUG USE FOR UNKNOWN INDICATION
     Route: 048
     Dates: start: 20061101
  4. CEREKINON [Concomitant]
     Indication: DRUG USE FOR UNKNOWN INDICATION
     Route: 048
     Dates: start: 20061101

REACTIONS (7)
  - ATRIAL FIBRILLATION [None]
  - DYSPEPSIA [None]
  - HEART RATE INCREASED [None]
  - MALAISE [None]
  - MEMORY IMPAIRMENT [None]
  - MOVEMENT DISORDER [None]
  - OVERDOSE [None]
